FAERS Safety Report 24769374 (Version 1)
Quarter: 2024Q4

REPORT INFORMATION
  Report Type: Spontaneous
  Country: CA (occurrence: CA)
  Receive Date: 20241224
  Receipt Date: 20241224
  Transmission Date: 20250114
  Serious: Yes (Other)
  Sender: HELSINN HEALTHCARE
  Company Number: CA-HBP-2024CA031515

PATIENT
  Age: 84 Year
  Sex: Male

DRUGS (2)
  1. MECHLORETHAMINE HYDROCHLORIDE [Suspect]
     Active Substance: MECHLORETHAMINE HYDROCHLORIDE
     Indication: Cutaneous T-cell lymphoma stage I
     Dosage: UNK, UNKNOWN
     Route: 065
  2. METHOTREXATE [Suspect]
     Active Substance: METHOTREXATE
     Indication: Cutaneous T-cell lymphoma stage I
     Dosage: UNK, UNKNOWN
     Route: 065

REACTIONS (2)
  - Disease progression [Unknown]
  - Gastrointestinal disorder [Unknown]
